FAERS Safety Report 13942976 (Version 1)
Quarter: 2017Q3

REPORT INFORMATION
  Report Type: Spontaneous
  Country: US (occurrence: US)
  Receive Date: 20170907
  Receipt Date: 20170907
  Transmission Date: 20171128
  Serious: No
  Sender: FDA-Public Use
  Company Number: None

PATIENT
  Age: 12 Year
  Sex: Female
  Weight: 41.4 kg

DRUGS (1)
  1. MOMETASONE FUROATE. [Suspect]
     Active Substance: MOMETASONE FUROATE
     Indication: RHINITIS ALLERGIC
     Route: 045
     Dates: start: 20170719, end: 20170907

REACTIONS (5)
  - Product substitution issue [None]
  - Condition aggravated [None]
  - Rhinorrhoea [None]
  - Sneezing [None]
  - Drug effect decreased [None]

NARRATIVE: CASE EVENT DATE: 20170901
